FAERS Safety Report 13292529 (Version 1)
Quarter: 2017Q1

REPORT INFORMATION
  Report Type: Spontaneous
  Country: US (occurrence: US)
  Receive Date: 20170303
  Receipt Date: 20170303
  Transmission Date: 20170428
  Serious: Yes (Hospitalization)
  Sender: FDA-Public Use
  Company Number: None

PATIENT
  Age: 49 Year
  Sex: Male
  Weight: 101 kg

DRUGS (1)
  1. INVOKANA [Suspect]
     Active Substance: CANAGLIFLOZIN
     Indication: TYPE 2 DIABETES MELLITUS
     Dosage: 1 DF DOSAGE DAILY ORAL   1 WEEK
     Route: 048

REACTIONS (9)
  - Flank pain [None]
  - Fatigue [None]
  - Nausea [None]
  - Leukocytosis [None]
  - Nephrolithiasis [None]
  - Metabolic acidosis [None]
  - Diabetic ketoacidosis [None]
  - Pyelonephritis [None]
  - Dehydration [None]

NARRATIVE: CASE EVENT DATE: 20170302
